FAERS Safety Report 9904796 (Version 1)
Quarter: 2013Q2

REPORT INFORMATION
  Report Type: Spontaneous
  Country: US (occurrence: None)
  Receive Date: 20130305
  Receipt Date: 20130305
  Transmission Date: 20140414
  Serious: Yes (Other)
  Sender: FDA-Public Use
  Company Number: 163-21880-12033598

PATIENT
  Age: 44 Year
  Sex: Female

DRUGS (9)
  1. REVLIMID [Suspect]
     Indication: PLASMA CELL MYELOMA
     Dosage: 10 MG, X 28 CAPS, PO
     Route: 048
     Dates: start: 20120316, end: 20120322
  2. REVLIMID [Suspect]
     Indication: PARAPROTEINAEMIA
     Dosage: 10 MG, X 28 CAPS, PO
     Route: 048
     Dates: start: 20120316, end: 20120322
  3. ASPIRIN (ACETYLSALICYLIC ACID) (TABLETS) [Concomitant]
  4. BROMDAY (BROMFENANC SODIUM) (SOLUTION) [Concomitant]
  5. BYETTA (EXENATIDE) (SOLUTION) [Concomitant]
  6. CLONIDINE HCL (CLONIDINE HYDROCHLORIDE) (0.1 MILLIGRAM, TABLETS) [Concomitant]
  7. FUROSEMIDE (FUROSEMIDE) (40 MILLIGRAM, TABLETS) [Concomitant]
  8. GLIMEPIRIDE (GLIMEPIRIDE) (4 MILLIGRAM, TABLETS) [Concomitant]
  9. SIMVASTATIN (SIMVASTATIN) (10 MILLIGRAM, TABLETS) [Concomitant]

REACTIONS (5)
  - Eyelid oedema [None]
  - Rash generalised [None]
  - Swelling face [None]
  - Fatigue [None]
  - Skin burning sensation [None]
